FAERS Safety Report 10233745 (Version 1)
Quarter: 2014Q2

REPORT INFORMATION
  Report Type: Spontaneous
  Country: GB (occurrence: GB)
  Receive Date: 20140612
  Receipt Date: 20140612
  Transmission Date: 20141212
  Serious: Yes (Other)
  Sender: FDA-Public Use
  Company Number: GB-TEVA-486835ISR

PATIENT
  Sex: Male

DRUGS (13)
  1. TRIMETHOPRIM [Suspect]
  2. PRIADEL [Interacting]
  3. ASPIRIN [Concomitant]
  4. ATENOLOL [Concomitant]
  5. CALCEOS [Concomitant]
  6. EPILIM CHRONO [Concomitant]
  7. FUROSEMIDE [Concomitant]
  8. GLICLAZIDE [Concomitant]
  9. GTN [Concomitant]
  10. ISOSORBIDE [Concomitant]
  11. NOVOMIX [Concomitant]
  12. OMEPRAZOLE [Concomitant]
  13. SIMVASTATIN [Concomitant]

REACTIONS (6)
  - Antipsychotic drug level increased [Recovering/Resolving]
  - Influenza like illness [Recovering/Resolving]
  - Diarrhoea [Recovering/Resolving]
  - Headache [Recovering/Resolving]
  - Fatigue [Recovering/Resolving]
  - Drug interaction [Unknown]
